FAERS Safety Report 16121910 (Version 8)
Quarter: 2020Q3

REPORT INFORMATION
  Report Type: Report from Study
  Country: DE (occurrence: DE)
  Receive Date: 20190327
  Receipt Date: 20200908
  Transmission Date: 20201102
  Serious: Yes (Hospitalization)
  Sender: FDA-Public Use
  Company Number: DE-ROCHE-2288005

PATIENT
  Age: 65 Year
  Sex: Female
  Weight: 75 kg

DRUGS (11)
  1. DULCOLAX (BISACODYL) [Concomitant]
     Active Substance: BISACODYL
  2. MCP [Concomitant]
     Active Substance: METOCLOPRAMIDE HYDROCHLORIDE
  3. ELIQUIS [Concomitant]
     Active Substance: APIXABAN
  4. L?THYROX [Concomitant]
     Active Substance: LEVOTHYROXINE SODIUM
  5. BUSCOPAN [Concomitant]
     Active Substance: BUTYLSCOPOLAMINE BROMIDE
  6. SUMATRIPTAN. [Concomitant]
     Active Substance: SUMATRIPTAN
  7. COBIMETINIB. [Suspect]
     Active Substance: COBIMETINIB
     Indication: MALIGNANT MELANOMA
     Dosage: DATE OF MOST RECENT DOSE OF COBIMETINIB PRIOR TO THE ONSET OF CPK INCREASED AND LEFT VENTRICULAR SYS
     Route: 048
     Dates: start: 20190311
  8. VEMURAFENIB. [Suspect]
     Active Substance: VEMURAFENIB
     Indication: MALIGNANT MELANOMA
     Dosage: DATE OF MOST RECENT DOSE OF VEMURAFENIB PRIOR TO THE ONSET OF CPK INCREASED (20/MAR/2019) AND LEFT V
     Route: 048
     Dates: start: 20190311
  9. IBEROGAST [Concomitant]
     Active Substance: HERBALS
     Dosage: 20DROPS
  10. PREGABALIN. [Concomitant]
     Active Substance: PREGABALIN
  11. TORASEMID [Concomitant]
     Active Substance: TORSEMIDE

REACTIONS (2)
  - Blood creatine phosphokinase increased [Recovered/Resolved]
  - Left ventricular dysfunction [Recovered/Resolved]

NARRATIVE: CASE EVENT DATE: 20190320
